FAERS Safety Report 10273419 (Version 1)
Quarter: 2014Q1

REPORT INFORMATION
  Report Type: Spontaneous
  Country: US (occurrence: None)
  Receive Date: 20140306
  Receipt Date: 20140306
  Transmission Date: 20141002
  Serious: Yes (Hospitalization)
  Sender: FDA-Public Use
  Company Number: 163-21880-13082244

PATIENT
  Age: 46 Year
  Sex: Male

DRUGS (8)
  1. REVLIMID [Suspect]
     Indication: DIFFUSE LARGE B-CELL LYMPHOMA
     Dosage: 25 MG, 21 IN 21 D, PO
     Route: 048
     Dates: start: 201104, end: 2011
  2. PREDNISONE (PREDNISONE) (UNKNOWN) [Concomitant]
  3. ACYCLOVIR (ACICLOVIR) (UNKNOWN) [Concomitant]
  4. VORICONAZOLE (VORICONAZOLE) (UNKNOWN) [Concomitant]
  5. OXYCODONE/ACETAMINOPHEN (UNKNOWN) [Concomitant]
  6. OXYCODONE HCL (OXYCODONE HYDROCHLORIDE) (UNKNOWN) [Concomitant]
  7. BACTRIM DS (BACTRIM) (UNKNOWN) [Concomitant]
  8. ATIVAN (LORAZEPAM) (UNKNOWN) [Concomitant]

REACTIONS (2)
  - Disease recurrence [None]
  - Spinal disorder [None]
